FAERS Safety Report 21338102 (Version 5)
Quarter: 2022Q4

REPORT INFORMATION
  Report Type: Spontaneous
  Country: US (occurrence: US)
  Receive Date: 20220915
  Receipt Date: 20221103
  Transmission Date: 20230112
  Serious: No
  Sender: FDA-Public Use
  Company Number: US-PFIZER INC-PV202200062400

PATIENT
  Age: 60 Year
  Sex: Female

DRUGS (2)
  1. IBRANCE [Suspect]
     Active Substance: PALBOCICLIB
     Dosage: 125 MG
     Dates: start: 20220722
  2. IBRANCE [Suspect]
     Active Substance: PALBOCICLIB
     Dosage: 100 MG

REACTIONS (20)
  - Neutrophil count decreased [Unknown]
  - White blood cell count decreased [Not Recovered/Not Resolved]
  - Dysgeusia [Unknown]
  - Pollakiuria [Unknown]
  - Alopecia [Unknown]
  - Stomatitis [Unknown]
  - Dry skin [Unknown]
  - Dry mouth [Unknown]
  - Decreased appetite [Unknown]
  - Hot flush [Unknown]
  - Thirst [Unknown]
  - Fatigue [Unknown]
  - Eye infection [Unknown]
  - Rash [Unknown]
  - Skin atrophy [Unknown]
  - Thyroid disorder [Unknown]
  - Rash [Unknown]
  - Ageusia [Unknown]
  - Rhinorrhoea [Unknown]
  - Epistaxis [Unknown]

NARRATIVE: CASE EVENT DATE: 20220101
